FAERS Safety Report 9033791 (Version 2)
Quarter: 2013Q2

REPORT INFORMATION
  Report Type: Spontaneous
  Country: CA (occurrence: CA)
  Receive Date: 20130128
  Receipt Date: 20130419
  Transmission Date: 20140414
  Serious: Yes (Other)
  Sender: FDA-Public Use
  Company Number: CA-AMGEN-CANSP2012072137

PATIENT
  Age: 68 Year
  Sex: Female

DRUGS (1)
  1. ENBREL [Suspect]
     Indication: RHEUMATOID ARTHRITIS
     Dosage: 50 MG, UNK
     Dates: start: 20111020

REACTIONS (4)
  - Activities of daily living impaired [Recovering/Resolving]
  - Infected skin ulcer [Recovering/Resolving]
  - Bacterial infection [Recovered/Resolved]
  - Limb discomfort [Not Recovered/Not Resolved]
